FAERS Safety Report 7036404-0 (Version None)
Quarter: 2010Q4

REPORT INFORMATION
  Report Type: 
  Country: None (occurrence: None)
  Receive Date: 20101010
  Receipt Date: 20100927
  Transmission Date: 20110411
  Serious: Yes (Other)
  Sender: FDA-Public Use
  Company Number: PHHY2010JP57924

PATIENT
  Sex: Male

DRUGS (6)
  1. ZOMETA [Suspect]
     Indication: METASTASES TO BONE
     Dosage: 4 MG, UNK
     Route: 041
     Dates: start: 20100819, end: 20100819
  2. DUROTEP [Concomitant]
     Dosage: 2.1 MG, UNK
     Route: 062
     Dates: start: 20100601
  3. OXYCONTIN [Concomitant]
     Dosage: 20 MG, UNK
     Route: 048
     Dates: start: 20100812
  4. OXYCONTIN [Concomitant]
     Dosage: 10 MG, UNK
     Route: 048
  5. OXINORM [Concomitant]
     Dosage: 5 MG, UNK
     Route: 048
     Dates: start: 20100812
  6. MUCOSTA [Concomitant]
     Dosage: 300 MG, UNK
     Route: 048
     Dates: start: 20100812

REACTIONS (14)
  - ALANINE AMINOTRANSFERASE INCREASED [None]
  - ASPARTATE AMINOTRANSFERASE INCREASED [None]
  - BLOOD CREATININE INCREASED [None]
  - DECREASED APPETITE [None]
  - FLANK PAIN [None]
  - GENERAL PHYSICAL HEALTH DETERIORATION [None]
  - GENERALISED OEDEMA [None]
  - HAEMATOCRIT DECREASED [None]
  - HAEMOGLOBIN DECREASED [None]
  - INSOMNIA [None]
  - LYMPHOEDEMA [None]
  - MALAISE [None]
  - MUSCULOSKELETAL STIFFNESS [None]
  - RED BLOOD CELL COUNT DECREASED [None]
